FAERS Safety Report 7463792-3 (Version None)
Quarter: 2011Q2

REPORT INFORMATION
  Report Type: 
  Country: None (occurrence: None)
  Receive Date: 20110506
  Receipt Date: 20110421
  Transmission Date: 20111010
  Serious: Yes (Hospitalization, Other)
  Sender: FDA-Public Use
  Company Number: PHHY2011ES35685

PATIENT
  Age: 39 Year
  Sex: Male

DRUGS (12)
  1. ROSUVASTATIN [Interacting]
     Dosage: 20 MG,
     Dates: start: 20100524
  2. MYCOPHENOLATE MOFETIL [Concomitant]
  3. TENOFOVIR DISOPROXIL FUMARATE [Concomitant]
     Dosage: UNK
     Dates: start: 20100621
  4. ROSUVASTATIN [Interacting]
     Dosage: 40 MG,
     Dates: start: 20100621
  5. CYCLOSPORINE [Suspect]
     Indication: LIVER TRANSPLANT
  6. LAMIVUDINE [Concomitant]
  7. TACROLIMUS [Concomitant]
  8. EMTRICITABINE [Concomitant]
     Dosage: UNK
     Dates: start: 20100621
  9. ROSUVASTATIN [Interacting]
     Dosage: 10 MG,
  10. STEROIDS NOS [Concomitant]
  11. ABACAVIR [Concomitant]
  12. RALTEGRAVIR [Concomitant]

REACTIONS (20)
  - HEPATIC FUNCTION ABNORMAL [None]
  - PROTEINURIA [None]
  - CELL DEATH [None]
  - RENAL IMPAIRMENT [None]
  - MALAISE [None]
  - CYTOMEGALOVIRUS VIRAEMIA [None]
  - GAIT DISTURBANCE [None]
  - LIVER TRANSPLANT REJECTION [None]
  - LIVER INJURY [None]
  - HYPERSPLENISM [None]
  - CHOLESTASIS [None]
  - DYSLIPIDAEMIA [None]
  - DRUG INTERACTION [None]
  - RHABDOMYOLYSIS [None]
  - SPLEEN DISORDER [None]
  - GLYCOSURIA [None]
  - MYALGIA [None]
  - ACIDOSIS [None]
  - SPLENIC EMBOLISM [None]
  - ASTHENIA [None]
